FAERS Safety Report 7549051-9 (Version None)
Quarter: 2011Q2

REPORT INFORMATION
  Report Type: 
  Country: None (occurrence: None)
  Receive Date: 20110615
  Receipt Date: 20110607
  Transmission Date: 20111010
  Serious: Yes (Hospitalization, Other)
  Sender: FDA-Public Use
  Company Number: US-ROCHE-735749

PATIENT
  Sex: Male
  Weight: 102.1 kg

DRUGS (5)
  1. MINOCIN [Concomitant]
  2. ACCUTANE [Suspect]
     Route: 065
     Dates: start: 20011108
  3. ACCUTANE [Suspect]
     Dosage: INDICATION: FOLLICULITIS
     Route: 065
     Dates: start: 19990218, end: 20010101
  4. ACCUTANE [Suspect]
     Route: 065
     Dates: start: 19860901, end: 19870930
  5. ACCUTANE [Suspect]
     Route: 065
     Dates: start: 20020128

REACTIONS (11)
  - INTESTINAL OBSTRUCTION [None]
  - DEPRESSION [None]
  - TINEA PEDIS [None]
  - BLOOD CHOLESTEROL INCREASED [None]
  - INFLAMMATORY BOWEL DISEASE [None]
  - GASTROINTESTINAL INJURY [None]
  - COLITIS [None]
  - DIVERTICULUM INTESTINAL [None]
  - ASPARTATE AMINOTRANSFERASE INCREASED [None]
  - COLITIS ULCERATIVE [None]
  - BLOOD TRIGLYCERIDES INCREASED [None]
